FAERS Safety Report 25116933 (Version 2)
Quarter: 2025Q3

REPORT INFORMATION
  Report Type: Report from Study
  Country: US (occurrence: US)
  Receive Date: 20250325
  Receipt Date: 20250722
  Transmission Date: 20251021
  Serious: No
  Sender: SYNDAX
  Company Number: US-SYNDAX PHARMACEUTICALS, INC.-2025US000265

PATIENT
  Sex: Female

DRUGS (1)
  1. REVUFORJ [Suspect]
     Active Substance: REVUMENIB CITRATE
     Indication: Product used for unknown indication
     Dosage: 110 MILLIGRAM, DAILY
     Route: 048
     Dates: start: 20250207

REACTIONS (1)
  - Decreased appetite [Unknown]
